FAERS Safety Report 5036798-1 (Version None)
Quarter: 2006Q2

REPORT INFORMATION
  Report Type: 
  Country: None (occurrence: None)
  Receive Date: 20060601
  Receipt Date: 20050913
  Transmission Date: 20061013
  Serious: Yes (Disabling)
  Sender: FDA-Public Use
  Company Number: 2005US001257

PATIENT
  Age: 3 Year
  Sex: Male

DRUGS (5)
  1. PROGRAF [Suspect]
     Indication: PROPHYLAXIS AGAINST TRANSPLANT REJECTION
     Dosage: 1.00 MG, BID, ORAL
     Route: 048
     Dates: start: 20030801
  2. PROGRAF [Suspect]
     Indication: PROPHYLAXIS AGAINST TRANSPLANT REJECTION
     Dosage: 1.00 MG, BID, ORAL
     Route: 048
     Dates: start: 20050101
  3. MYCOPHENOLATE MOFETIL [Concomitant]
  4. PREDNISONE TAB [Concomitant]
  5. MEPRON [Concomitant]

REACTIONS (1)
  - DEAFNESS BILATERAL [None]
